FAERS Safety Report 5572248-4 (Version None)
Quarter: 2007Q4

REPORT INFORMATION
  Report Type: 
  Country: None (occurrence: None)
  Receive Date: 20071221
  Receipt Date: 20071214
  Transmission Date: 20080405
  Serious: Yes (Hospitalization, Other)
  Sender: FDA-Public Use
  Company Number: US-GENENTECH-252857

PATIENT
  Age: 85 Year
  Sex: Female

DRUGS (14)
  1. BEVACIZUMAB [Suspect]
     Indication: RENAL CELL CARCINOMA STAGE UNSPECIFIED
     Dosage: 10 MG/KG, UNK
     Dates: start: 20061212
  2. SUNITINIB MALATE [Suspect]
     Indication: RENAL CELL CARCINOMA STAGE UNSPECIFIED
     Dosage: 50 MG, UNK
     Dates: start: 20061213, end: 20070307
  3. SUNITINIB MALATE [Suspect]
     Dosage: 37.5 MG, UNK
     Dates: start: 20070418
  4. LORAZEPAM [Concomitant]
     Indication: INSOMNIA
  5. ASCORBIC ACID [Concomitant]
     Indication: DRUG USE FOR UNKNOWN INDICATION
     Dosage: 500 MG, UNK
  6. MULTI-VITAMIN [Concomitant]
     Indication: DRUG USE FOR UNKNOWN INDICATION
  7. CALCIUM [Concomitant]
     Indication: DRUG USE FOR UNKNOWN INDICATION
  8. BISOPROLOL FUMARATE AND HYDROCHLOROTHIAZIDE [Concomitant]
     Indication: HYPERTENSION
  9. FEXOFENADINE [Concomitant]
     Indication: HYPERSENSITIVITY
  10. ESOMEPRAZOLE MAGNESIUM [Concomitant]
     Indication: ABDOMINAL DISCOMFORT
     Dosage: 10 MG, UNK
  11. SULAR [Concomitant]
     Indication: HYPERTENSION
  12. LEVOTHYROXINE SODIUM [Concomitant]
     Indication: HYPOTHYROIDISM
     Dosage: 50 A?G, UNK
  13. VICODIN [Concomitant]
     Indication: PAIN
  14. ALLOPURINOL [Concomitant]
     Indication: DRUG USE FOR UNKNOWN INDICATION

REACTIONS (1)
  - THROMBOTIC MICROANGIOPATHY [None]
